FAERS Safety Report 24665351 (Version 1)
Quarter: 2024Q4

REPORT INFORMATION
  Report Type: Spontaneous
  Country: ES (occurrence: ES)
  Receive Date: 20241126
  Receipt Date: 20241126
  Transmission Date: 20250115
  Serious: Yes (Hospitalization)
  Sender: FRESENIUS KABI
  Company Number: ES-ROCHE-3523027

PATIENT
  Age: 70 Year
  Sex: Male
  Weight: 65.1 kg

DRUGS (32)
  1. PEMETREXED [Suspect]
     Active Substance: PEMETREXED
     Indication: Non-small cell lung cancer metastatic
     Dosage: ON 20/FEB/2024, HE RECEIVED MOST RECENT DOSE OF PEMETREXED (398 MG) PRIOR TO SAE.?FORM OF ADMIN.: IN
     Route: 042
     Dates: start: 20230801
  2. PEMETREXED [Suspect]
     Active Substance: PEMETREXED
     Dosage: ON 20/FEB/2024, HE RECEIVED MOST RECENT DOSE OF CARBOPLATIN (398 MG) PRIOR TO SAE?FORM OF ADMIN.: IN
     Route: 042
  3. PLACEBO [Suspect]
     Active Substance: PLACEBO
     Indication: Non-small cell lung cancer metastatic
     Dosage: FORM OF ADMIN.: INFUSION
     Route: 042
     Dates: start: 20230801
  4. PEMBROLIZUMAB [Suspect]
     Active Substance: PEMBROLIZUMAB
     Indication: Non-small cell lung cancer metastatic
     Dosage: ON 20/FEB/2024, HE RECEIVED MOST RECENT DOSE OF ATEZOLIZUMAB/PERBROLIZUMAB PRIOR TO SAE.?FORM OF ADM
     Route: 042
     Dates: start: 20230801
  5. PEMBROLIZUMAB [Suspect]
     Active Substance: PEMBROLIZUMAB
     Route: 042
  6. PEMBROLIZUMAB [Suspect]
     Active Substance: PEMBROLIZUMAB
     Route: 042
  7. PEMBROLIZUMAB [Suspect]
     Active Substance: PEMBROLIZUMAB
     Route: 042
  8. CARBOPLATIN [Suspect]
     Active Substance: CARBOPLATIN
     Indication: Non-small cell lung cancer metastatic
     Dosage: ON 19/SEP/2023, HE RECEIVED MOST RECENT DOSE OF CARBOPLATIN (397 MG) PRIOR TO SAE.?FORM OF ADMIN.: I
     Route: 042
     Dates: start: 20230801
  9. CARBOPLATIN [Suspect]
     Active Substance: CARBOPLATIN
     Dosage: ON 19/SEP/2023, HE RECEIVED MOST RECENT DOSE OF CARBOPLATIN (397 MG) PRIOR TO SAE?FORM OF ADMIN.: IN
     Route: 042
  10. ATEZOLIZUMAB [Suspect]
     Active Substance: ATEZOLIZUMAB
     Indication: Non-small cell lung cancer metastatic
     Dosage: ON 20/FEB/2024, HE RECEIVED MOST RECENT DOSE OF ATEZOLIZUMAB/PERBROLIZUMAB PRIOR TO SAE.?FORM OF ADM
     Route: 041
     Dates: start: 20230801
  11. ATEZOLIZUMAB [Suspect]
     Active Substance: ATEZOLIZUMAB
     Route: 041
  12. ZOLEDRONIC ACID [Concomitant]
     Active Substance: ZOLEDRONIC ACID
     Indication: Product used for unknown indication
     Dosage: FORM OF ADMIN.: INJECTION
     Route: 042
     Dates: start: 20240927
  13. CIPROFLOXACIN [Concomitant]
     Active Substance: CIPROFLOXACIN
     Indication: Product used for unknown indication
     Dosage: FORM OF ADMIN.: CAPSULE
     Route: 048
     Dates: start: 20240229, end: 20240307
  14. FAMOTIDINE [Concomitant]
     Active Substance: FAMOTIDINE
     Indication: Product used for unknown indication
     Route: 048
     Dates: start: 20230719
  15. PYRIDOXINE HYDROCHLORIDE [Concomitant]
     Active Substance: PYRIDOXINE HYDROCHLORIDE
     Indication: Product used for unknown indication
     Route: 048
     Dates: start: 20230719
  16. ASPIRIN [Concomitant]
     Active Substance: ASPIRIN
     Indication: Product used for unknown indication
     Dosage: DRUG DOSE FIRST ADMINISTERED IS 400 OTHER ;ONGOING: YES
     Route: 048
     Dates: start: 20200508
  17. ACETAMINOPHEN [Concomitant]
     Active Substance: ACETAMINOPHEN
     Indication: Product used for unknown indication
     Route: 048
     Dates: start: 20200508
  18. TRAZODONE [Concomitant]
     Active Substance: TRAZODONE HYDROCHLORIDE
     Indication: Product used for unknown indication
     Dates: start: 20230606
  19. DEXAMETHASONE [Concomitant]
     Active Substance: DEXAMETHASONE
     Indication: Product used for unknown indication
     Dosage: FORM OF ADMIN.: CAPSULE
     Route: 048
     Dates: start: 20230731, end: 20240220
  20. THIAMINE [Concomitant]
     Active Substance: THIAMINE
     Indication: Product used for unknown indication
     Route: 048
     Dates: start: 20230719
  21. LEVOTHYROXINE SODIUM [Concomitant]
     Active Substance: LEVOTHYROXINE SODIUM
     Indication: Product used for unknown indication
     Dosage: FORM OF ADMIN.: CAPSULE
     Route: 048
     Dates: start: 20231218
  22. LEVOTHYROXINE SODIUM [Concomitant]
     Active Substance: LEVOTHYROXINE SODIUM
     Dosage: FORM OF ADMIN.: CAPSULE
     Route: 048
     Dates: start: 20240927
  23. LEVOTHYROXINE SODIUM [Concomitant]
     Active Substance: LEVOTHYROXINE SODIUM
     Dosage: FORM OF ADMIN.: CAPSULE
     Route: 048
     Dates: start: 20240109, end: 20240926
  24. ZOLICO [FOLIC ACID] [Concomitant]
     Indication: Product used for unknown indication
     Dosage: YES
     Dates: start: 20230719
  25. PIPERACILLIN [Concomitant]
     Active Substance: PIPERACILLIN
     Indication: Neutrophil count decreased
     Dosage: FORM OF ADMIN.: CAPSULE
     Route: 048
     Dates: start: 20240229, end: 20240307
  26. TAZOBACTAM [Concomitant]
     Active Substance: TAZOBACTAM
     Indication: Neutrophil count decreased
     Dosage: FORM OF ADMIN.: CAPSULE
     Route: 048
     Dates: start: 20240229, end: 20240307
  27. AMOXICILLIN [Concomitant]
     Active Substance: AMOXICILLIN
     Indication: Neutrophil count decreased
     Dosage: FORM OF ADMIN.: CAPSULE
     Route: 048
     Dates: start: 20240229, end: 20240307
  28. METHYLPREDNISOLONE [Concomitant]
     Active Substance: METHYLPREDNISOLONE
     Indication: Arthritis
     Dosage: FORM OF ADMIN.: CAPSULE
     Route: 048
     Dates: start: 20240612
  29. METHYLPREDNISOLONE [Concomitant]
     Active Substance: METHYLPREDNISOLONE
     Dosage: FORM OF ADMIN.: CAPSULE
     Route: 048
     Dates: start: 20240614, end: 20240615
  30. METHYLPREDNISOLONE [Concomitant]
     Active Substance: METHYLPREDNISOLONE
     Dosage: FORM OF ADMIN.: CAPSULE
     Route: 048
     Dates: start: 20240618, end: 20240619
  31. METHYLPREDNISOLONE [Concomitant]
     Active Substance: METHYLPREDNISOLONE
     Dosage: FORM OF ADMIN.: CAPSULE
     Route: 048
     Dates: start: 20240616, end: 20240617
  32. PREDNISONE [Concomitant]
     Active Substance: PREDNISONE
     Indication: Prophylaxis
     Dosage: FORM OF ADMIN.: CAPSULE
     Route: 048
     Dates: start: 20240619

REACTIONS (2)
  - Nephritis [Not Recovered/Not Resolved]
  - Colitis [Recovered/Resolved]

NARRATIVE: CASE EVENT DATE: 20240301
